FAERS Safety Report 10174631 (Version 1)
Quarter: 2014Q2

REPORT INFORMATION
  Report Type: Spontaneous
  Country: US (occurrence: US)
  Receive Date: 20140515
  Receipt Date: 20140515
  Transmission Date: 20141212
  Serious: Yes (Death)
  Sender: FDA-Public Use
  Company Number: US-GLAXOSMITHKLINE-A1072847A

PATIENT
  Age: 75 Year
  Sex: Male

DRUGS (1)
  1. VOTRIENT [Suspect]
     Indication: ILL-DEFINED DISORDER
     Dosage: 800MG PER DAY
     Route: 048
     Dates: start: 20120224

REACTIONS (3)
  - Death [Fatal]
  - Myocardial infarction [Unknown]
  - Hypertension [Unknown]
